FAERS Safety Report 12466988 (Version 1)
Quarter: 2016Q2

REPORT INFORMATION
  Report Type: Report from Study
  Country: BE (occurrence: BE)
  Receive Date: 20160615
  Receipt Date: 20160615
  Transmission Date: 20160815
  Serious: Yes (Hospitalization, Other)
  Sender: FDA-Public Use
  Company Number: PHHO2011BE024840

PATIENT
  Age: 77 Year
  Sex: Male
  Weight: 59 kg

DRUGS (27)
  1. TRAMADOL HYDROCHLORIDE. [Concomitant]
     Active Substance: TRAMADOL HYDROCHLORIDE
     Indication: ABDOMINAL PAIN UPPER
     Dosage: 100 MG, QD
     Route: 042
     Dates: start: 20110710, end: 20110711
  2. POTASSIUM CHLORIDE. [Concomitant]
     Active Substance: POTASSIUM CHLORIDE
     Indication: HYPOKALAEMIA
     Dosage: 40 MEQ, QD
     Route: 042
     Dates: start: 20110718, end: 20110719
  3. 3M CAVILON ANTIFUNGAL [Concomitant]
     Active Substance: MICONAZOLE NITRATE
     Dosage: 1 DF, 1D
     Route: 061
     Dates: start: 20110726, end: 20110727
  4. PERFUSALGAN [Concomitant]
     Active Substance: ACETAMINOPHEN
     Indication: ABDOMINAL PAIN UPPER
     Dosage: 1 G, PRN
     Route: 042
     Dates: start: 20110710, end: 20110714
  5. PERFUSALGAN [Concomitant]
     Active Substance: ACETAMINOPHEN
     Indication: PYREXIA
     Dosage: 1 G, ONCE/SINGLE
     Route: 042
     Dates: start: 20110727, end: 20110727
  6. IMODIUM [Concomitant]
     Active Substance: LOPERAMIDE HYDROCHLORIDE
     Indication: DIARRHOEA
     Dosage: 2 MG, PRN
     Route: 048
     Dates: start: 20110728, end: 20110729
  7. GLUCOSE W/ELECTROLYTES [Concomitant]
     Indication: PROPHYLAXIS AGAINST DEHYDRATION
     Dosage: 1000 ML, CO
     Route: 042
     Dates: start: 20110710, end: 20110711
  8. MORPHINE HYDROCHLORIDE [Concomitant]
     Active Substance: MORPHINE HYDROCHLORIDE
     Indication: ABDOMINAL PAIN UPPER
     Dosage: 1 DF, PRN
     Route: 042
     Dates: start: 20110711, end: 20110716
  9. STILNOCT [Concomitant]
     Active Substance: ZOLPIDEM TARTRATE
     Indication: PROPHYLAXIS
     Dosage: 5 MG, SINGLE
     Route: 048
     Dates: start: 20110720, end: 20110720
  10. COLOPEG [Concomitant]
     Active Substance: POLYETHYLENE GLYCOL 3350\POTASSIUM CHLORIDE\SODIUM BICARBONATE\SODIUM CHLORIDE\SODIUM SULFATE
     Indication: CONSTIPATION
     Dosage: 70 G, ONCE/SINGLE
     Route: 048
     Dates: start: 20110713, end: 20110713
  11. BENDAMUSTINE [Suspect]
     Active Substance: BENDAMUSTINE
     Indication: NON-HODGKIN^S LYMPHOMA
     Dosage: 2 INFUSIONS PER CYCLE
     Route: 042
     Dates: start: 20101129, end: 20110503
  12. LOSEC [Concomitant]
     Active Substance: OMEPRAZOLE
     Dosage: 40 MG, QD
     Route: 048
     Dates: start: 20110728, end: 20110730
  13. ALDACTONE [Concomitant]
     Active Substance: SPIRONOLACTONE
     Indication: FLUID RETENTION
     Dosage: 25 MG, QD
     Route: 048
     Dates: start: 20110719, end: 20110720
  14. DAFALGAN [Concomitant]
     Active Substance: ACETAMINOPHEN
     Indication: PYREXIA
     Dosage: 1 G, PRN
     Route: 048
     Dates: start: 20110721, end: 20110730
  15. ULTRA-K [Concomitant]
     Dosage: 30 ML, Q8H
     Route: 048
     Dates: start: 20110725, end: 20110729
  16. SODIUM CHLORIDE. [Concomitant]
     Active Substance: SODIUM CHLORIDE
     Indication: PROPHYLAXIS
     Dosage: 1000 ML, CO
     Route: 042
     Dates: start: 20110730, end: 20110730
  17. LITICAN//ALIZAPRIDE HYDROCHLORIDE [Concomitant]
     Dosage: 150 MG, OT
     Route: 042
     Dates: start: 20110714, end: 20110717
  18. SODIUM BICARBONATE. [Concomitant]
     Active Substance: SODIUM BICARBONATE
     Indication: BLOOD BICARBONATE DECREASED
     Dosage: 500 ML, OT
     Route: 042
     Dates: start: 20110714, end: 20110716
  19. LASIX [Concomitant]
     Active Substance: FUROSEMIDE
     Indication: FLUID RETENTION
     Dosage: 40 MG, QD
     Route: 042
     Dates: start: 20110717, end: 20110719
  20. 3M CAVILON ANTIFUNGAL [Concomitant]
     Active Substance: MICONAZOLE NITRATE
     Indication: PROPHYLAXIS
     Dosage: 1 DF, BID
     Route: 061
     Dates: start: 20110724, end: 20110725
  21. LITICAN//ALIZAPRIDE HYDROCHLORIDE [Concomitant]
     Dosage: 200 MG, OT
     Route: 042
     Dates: start: 20110711, end: 20110712
  22. OFATUMUMAB [Suspect]
     Active Substance: OFATUMUMAB
     Indication: NON-HODGKIN^S LYMPHOMA
     Dosage: 1 INFUSION PER CYCLE
     Route: 042
     Dates: start: 20101129, end: 20110628
  23. LOSEC [Concomitant]
     Active Substance: OMEPRAZOLE
     Indication: PROPHYLAXIS
     Dosage: 40 MG, BID
     Route: 042
     Dates: start: 20110710, end: 20110727
  24. LORMETAZEPAM [Concomitant]
     Active Substance: LORMETAZEPAM
     Indication: INSOMNIA
     Dosage: 1 MG, PRN
     Route: 048
     Dates: start: 20110724, end: 20110729
  25. ULTRA-K [Concomitant]
     Indication: HYPOKALAEMIA
     Dosage: 15 MEQ, Q8H
     Route: 048
     Dates: start: 20110720, end: 20110721
  26. ULTRA-K [Concomitant]
     Dosage: 10 ML, Q8H
     Route: 048
     Dates: start: 20110722, end: 20110723
  27. LITICAN//ALIZAPRIDE HYDROCHLORIDE [Concomitant]
     Indication: PROPHYLAXIS OF NAUSEA AND VOMITING
     Dosage: 1 DF, PRN
     Route: 042
     Dates: start: 20110712, end: 20110712

REACTIONS (5)
  - Candida infection [Not Recovered/Not Resolved]
  - Varicella [Recovered/Resolved]
  - Pulmonary oedema [Recovered/Resolved]
  - Clostridium difficile infection [Recovered/Resolved]
  - Renal failure [Not Recovered/Not Resolved]

NARRATIVE: CASE EVENT DATE: 20110710
